FAERS Safety Report 7002809-7 (Version None)
Quarter: 2010Q3

REPORT INFORMATION
  Report Type: 
  Country: None (occurrence: None)
  Receive Date: 20100920
  Receipt Date: 20100914
  Transmission Date: 20110219
  Serious: Yes (Hospitalization, Other)
  Sender: FDA-Public Use
  Company Number: CHPA2010US14684

PATIENT
  Age: 84 Year
  Sex: Female

DRUGS (1)
  1. KERI LOTION (NCH) [Suspect]
     Dosage: UNK, UNK
     Route: 061
     Dates: start: 19770101

REACTIONS (3)
  - KNEE ARTHROPLASTY [None]
  - OSTEOARTHRITIS [None]
  - THERAPEUTIC RESPONSE UNEXPECTED [None]
